FAERS Safety Report 4437821-5 (Version None)
Quarter: 2004Q3

REPORT INFORMATION
  Report Type: 
  Country: None (occurrence: None)
  Receive Date: 20040728
  Receipt Date: 20040305
  Transmission Date: 20050211
  Serious: No
  Sender: FDA-Public Use
  Company Number: USA040361157

PATIENT
  Age: 26 Year
  Sex: Male
  Weight: 77 kg

DRUGS (2)
  1. STRATTERA [Suspect]
     Indication: ATTENTION DEFICIT/HYPERACTIVITY DISORDER
     Dosage: 40 MG
     Dates: start: 20040219
  2. CONCERTA [Concomitant]

REACTIONS (3)
  - MICTURITION URGENCY [None]
  - SCROTAL DISORDER [None]
  - URINARY HESITATION [None]
